FAERS Safety Report 18730362 (Version 1)
Quarter: 2021Q1

REPORT INFORMATION
  Report Type: Spontaneous
  Country: US (occurrence: US)
  Receive Date: 20210112
  Receipt Date: 20210112
  Transmission Date: 20210419
  Serious: Yes (Hospitalization)
  Sender: FDA-Public Use
  Company Number: None

PATIENT
  Age: 32 Year
  Sex: Female
  Weight: 72 kg

DRUGS (1)
  1. THYMOGLOBULIN [Suspect]
     Active Substance: LAPINE T-LYMPHOCYTE IMMUNE GLOBULIN
     Indication: RENAL TRANSPLANT
     Dates: start: 20201227, end: 20201231

REACTIONS (4)
  - Pain in jaw [None]
  - Arthralgia [None]
  - Pain in extremity [None]
  - Serum sickness [None]

NARRATIVE: CASE EVENT DATE: 20210108
